FAERS Safety Report 23033361 (Version 2)
Quarter: 2024Q1

REPORT INFORMATION
  Report Type: Report from Study
  Country: TR (occurrence: TR)
  Receive Date: 20231005
  Receipt Date: 20240102
  Transmission Date: 20240410
  Serious: Yes (Death, Other)
  Sender: FDA-Public Use
  Company Number: TR-PFIZER INC-PV202300079643

PATIENT
  Age: 69 Year
  Sex: Female

DRUGS (1)
  1. ELRANATAMAB [Suspect]
     Active Substance: ELRANATAMAB
     Indication: Plasma cell myeloma refractory
     Dosage: 76 MG
     Dates: start: 20230213

REACTIONS (2)
  - Death [Fatal]
  - Lower gastrointestinal haemorrhage [Unknown]
